FAERS Safety Report 6268322-X (Version None)
Quarter: 2009Q3

REPORT INFORMATION
  Report Type: 
  Country: None (occurrence: None)
  Receive Date: 20090715
  Receipt Date: 20090708
  Transmission Date: 20100115
  Serious: Yes (Hospitalization, Other)
  Sender: FDA-Public Use
  Company Number: ES-JNJFOC-20090701933

PATIENT
  Age: 64 Year
  Sex: Male

DRUGS (10)
  1. REMICADE [Suspect]
     Indication: RHEUMATOID ARTHRITIS
     Dosage: 17 INFUSIONS ADMINISTERED
     Route: 042
  2. DEFLAZACORT [Concomitant]
  3. METHOTREXATE [Concomitant]
  4. SULFASALAZINE [Concomitant]
  5. FOLIC ACID [Concomitant]
  6. METFORMIN HCL [Concomitant]
  7. GLIBENCLAMIDE [Concomitant]
  8. ALLOPURINOL [Concomitant]
  9. SIMVASTATIN [Concomitant]
  10. ATENOLOL [Concomitant]

REACTIONS (1)
  - PULMONARY TUBERCULOSIS [None]
